FAERS Safety Report 12976805 (Version 4)
Quarter: 2017Q1

REPORT INFORMATION
  Report Type: Spontaneous
  Country: JP (occurrence: JP)
  Receive Date: 20161128
  Receipt Date: 20170213
  Transmission Date: 20170428
  Serious: Yes (Hospitalization, Disabling, Other)
  Sender: FDA-Public Use
  Company Number: PHJP2016JP033797

PATIENT
  Age: 67 Year
  Sex: Female
  Weight: 37 kg

DRUGS (3)
  1. LAXOBERON [Concomitant]
     Active Substance: SODIUM PICOSULFATE
     Indication: CONSTIPATION
     Dosage: UNK UNK, PRN
     Route: 048
  2. SILECE [Concomitant]
     Active Substance: FLUNITRAZEPAM
     Indication: SLEEP DISORDER
     Dosage: 1 MG, QD
     Route: 048
  3. GILENYA [Suspect]
     Active Substance: FINGOLIMOD HYDROCHLORIDE
     Indication: MULTIPLE SCLEROSIS
     Dosage: 0.5 MG, QD
     Route: 048
     Dates: start: 20160926, end: 20161116

REACTIONS (7)
  - Activities of daily living impaired [Recovering/Resolving]
  - Monoplegia [Unknown]
  - Grip strength decreased [Recovered/Resolved]
  - White matter lesion [Recovering/Resolving]
  - Hypertension [Not Recovered/Not Resolved]
  - Dysarthria [Unknown]
  - Agnosia [Unknown]

NARRATIVE: CASE EVENT DATE: 20161012
